FAERS Safety Report 8428488-X (Version None)
Quarter: 2012Q2

REPORT INFORMATION
  Report Type: 
  Country: None (occurrence: None)
  Receive Date: 20120612
  Receipt Date: 20120605
  Transmission Date: 20120825
  Serious: No
  Sender: FDA-Public Use
  Company Number: US-PFIZER INC-2012135572

PATIENT
  Sex: Female
  Weight: 52.608 kg

DRUGS (14)
  1. ZOCOR [Concomitant]
     Indication: BLOOD CHOLESTEROL INCREASED
     Dosage: 10 MG, UNK
  2. CALCIUM [Concomitant]
     Dosage: UNK
  3. ACETAMINOPHEN [Concomitant]
     Dosage: UNK
  4. IRON [Concomitant]
     Dosage: UNK
  5. VITAMIN A [Concomitant]
     Dosage: UNK
  6. BONIVA [Concomitant]
     Indication: SCOLIOSIS
     Dosage: UNK
     Route: 042
  7. PREDNISONE [Suspect]
     Indication: LIGAMENT SPRAIN
     Dosage: UNK
     Dates: end: 20120604
  8. PROCRIT [Concomitant]
     Indication: BLOOD DISORDER
     Dosage: ONCE IN EVERY 8 WEEKS
  9. VITAMIN D [Concomitant]
     Dosage: UNK
  10. BONIVA [Concomitant]
     Indication: OSTEOARTHRITIS
  11. FOLIC ACID [Concomitant]
     Dosage: 1 MG, UNK
  12. IBUPROFEN (ADVIL) [Suspect]
     Indication: LIGAMENT SPRAIN
     Dosage: THREE TABLETS OF 200MG, 3X/DAY
     Route: 048
     Dates: start: 20120604
  13. ASPIRIN [Concomitant]
     Dosage: 81 MG, UNK
  14. VITAMIN B-12 [Concomitant]
     Dosage: UNK

REACTIONS (4)
  - ARTHROPATHY [None]
  - MUSCULOSKELETAL CHEST PAIN [None]
  - BONE DISORDER [None]
  - ARTHRALGIA [None]
